FAERS Safety Report 8123212 (Version 2)
Quarter: 2014Q1

REPORT INFORMATION
  Report Type: Spontaneous
  Country: US (occurrence: US)
  Receive Date: 20110907
  Receipt Date: 20140206
  Transmission Date: 20141002
  Serious: Yes (Hospitalization)
  Sender: FDA-Public Use
  Company Number: US-JNJFOC-20110901280

PATIENT
  Sex: Male
  Weight: 68.04 kg

DRUGS (3)
  1. DURAGESIC [Suspect]
     Indication: PAIN
     Route: 062
     Dates: start: 2009
  2. DURAGESIC [Suspect]
     Indication: PAIN
     Dosage: 175 UG/HR (100 + 75) ONCE EVERY 72 HOURS
     Route: 062
  3. MORPHINE SULFATE [Suspect]
     Indication: BREAKTHROUGH PAIN
     Route: 065

REACTIONS (6)
  - Pain [Recovered/Resolved]
  - Therapeutic response decreased [Not Recovered/Not Resolved]
  - Dermatitis contact [Not Recovered/Not Resolved]
  - Inappropriate schedule of drug administration [Recovered/Resolved]
  - Wrong technique in drug usage process [Not Recovered/Not Resolved]
  - Product adhesion issue [Not Recovered/Not Resolved]
